FAERS Safety Report 7120622-7 (Version None)
Quarter: 2010Q4

REPORT INFORMATION
  Report Type: 
  Country: None (occurrence: None)
  Receive Date: 20101122
  Receipt Date: 20101122
  Transmission Date: 20110411
  Serious: No
  Sender: FDA-Public Use
  Company Number: None

PATIENT

DRUGS (1)
  1. INVANZ [Suspect]
     Dosage: 1 GRAM N/A IV ADV
     Route: 042
     Dates: start: 20101120

REACTIONS (1)
  - PRODUCT CLOSURE REMOVAL DIFFICULT [None]
